FAERS Safety Report 15677526 (Version 2)
Quarter: 2018Q4

REPORT INFORMATION
  Report Type: Report from Study
  Country: KR (occurrence: KR)
  Receive Date: 20181130
  Receipt Date: 20181214
  Transmission Date: 20190205
  Serious: Yes (Life-Threatening, Hospitalization)
  Sender: FDA-Public Use
  Company Number: PHHY2018KR170691

PATIENT
  Age: 57 Year
  Sex: Male
  Weight: 82 kg

DRUGS (6)
  1. ENTRESTO [Suspect]
     Active Substance: SACUBITRIL\VALSARTAN
     Indication: CARDIAC FAILURE
     Dosage: 100 MG, UNK
     Route: 048
     Dates: start: 20181122, end: 20181125
  2. NEUSTATIN A [Concomitant]
     Indication: DYSLIPIDAEMIA
     Dosage: 20 MG, UNK
     Route: 065
     Dates: start: 20180928
  3. ALDACTONE [Concomitant]
     Active Substance: SPIRONOLACTONE
     Indication: CARDIAC FAILURE
     Dosage: 6.25 MG, UNK
     Route: 065
     Dates: start: 20180928
  4. CORDARONE [Concomitant]
     Active Substance: AMIODARONE HYDROCHLORIDE
     Indication: ATRIAL FIBRILLATION
     Dosage: 100 MG, UNK
     Route: 065
     Dates: start: 20180928
  5. DIGOXIN. [Concomitant]
     Active Substance: DIGOXIN
     Indication: CARDIAC FAILURE
     Dosage: 0.25 MG, UNK
     Route: 065
     Dates: start: 20180928
  6. INTRACK [Concomitant]
     Indication: CARDIAC FAILURE
     Dosage: 6.25 MG, UNK
     Route: 065
     Dates: start: 20180928

REACTIONS (7)
  - Bradycardia [Recovered/Resolved]
  - Palpitations [Recovering/Resolving]
  - Dizziness [Recovering/Resolving]
  - Vomiting [Recovering/Resolving]
  - Hyperkalaemia [Recovering/Resolving]
  - Blood urea increased [Recovering/Resolving]
  - Blood creatine increased [Unknown]

NARRATIVE: CASE EVENT DATE: 20181125
